FAERS Safety Report 16254511 (Version 1)
Quarter: 2019Q2

REPORT INFORMATION
  Report Type: Report from Study
  Country: IT (occurrence: IT)
  Receive Date: 20190430
  Receipt Date: 20190430
  Transmission Date: 20190711
  Serious: Yes (Other)
  Sender: FDA-Public Use
  Company Number: IT-TEVA-2019-IT-1042642

PATIENT
  Age: 65 Year
  Sex: Female

DRUGS (6)
  1. CARDIOASPIRIN 100 MG COMPRESSE GASTRORESISTENTI [Concomitant]
     Active Substance: ASPIRIN
     Indication: HYPERTENSION
  2. AZITHROMYCIN ANHYDROUS. [Suspect]
     Active Substance: AZITHROMYCIN ANHYDROUS
     Indication: COUGH
     Dosage: 1 DOSAGE FORMS DAILY;
     Route: 048
     Dates: start: 20190307, end: 20190311
  3. EUTIROX 25 MICROGRAMMI COMPRESSE [Concomitant]
     Active Substance: LEVOTHYROXINE SODIUM
     Indication: HYPOTHYROIDISM
  4. METFORMIN [Concomitant]
     Active Substance: METFORMIN HYDROCHLORIDE
     Indication: DIABETES MELLITUS
  5. BENAZEPRIL CLORIDRATO/IDROCLOROTIAZIDE [Concomitant]
     Indication: HYPERTENSION
  6. ZORIAS 10 MG CAPSULE [Concomitant]
     Indication: PSORIASIS

REACTIONS (4)
  - Lip swelling [Recovering/Resolving]
  - Pruritus generalised [Recovering/Resolving]
  - Angioedema [Recovering/Resolving]
  - Urticaria [Recovering/Resolving]

NARRATIVE: CASE EVENT DATE: 20190311
